FAERS Safety Report 8427662-6 (Version None)
Quarter: 2012Q2

REPORT INFORMATION
  Report Type: 
  Country: None (occurrence: None)
  Receive Date: 20120611
  Receipt Date: 20120531
  Transmission Date: 20120825
  Serious: Yes (Hospitalization)
  Sender: FDA-Public Use
  Company Number: US-ACTELION-A-NJ2007-14264

PATIENT

DRUGS (14)
  1. VALIUM [Concomitant]
  2. TRACLEER [Suspect]
     Indication: PULMONARY HYPERTENSION
     Dosage: 62.5 MG, BID
     Route: 048
     Dates: start: 20070104, end: 20070203
  3. VIREAD [Concomitant]
  4. LASIX [Concomitant]
  5. LEXAPRO [Concomitant]
  6. EPIVIR [Concomitant]
  7. PREVACID [Concomitant]
  8. ESZOPICLONE [Concomitant]
  9. TRACLEER [Suspect]
     Dosage: 125 MG, BID
     Route: 048
     Dates: start: 20070204, end: 20070213
  10. ZIAGEN [Concomitant]
  11. NEURONTIN [Concomitant]
  12. ALBUTEROL [Concomitant]
  13. TRACLEER [Suspect]
     Dosage: 62.5 MG, BID
     Route: 048
     Dates: start: 20070217
  14. OXYCONTIN [Concomitant]

REACTIONS (11)
  - MYOCARDIAL INFARCTION [None]
  - DIZZINESS [None]
  - DRY SKIN [None]
  - VISUAL IMPAIRMENT [None]
  - PNEUMONIA [None]
  - HYPOTENSION [None]
  - OEDEMA PERIPHERAL [None]
  - HEART RATE INCREASED [None]
  - MIGRAINE [None]
  - ADVERSE DRUG REACTION [None]
  - OXYGEN SATURATION DECREASED [None]
